FAERS Safety Report 19237044 (Version 1)
Quarter: 2021Q2

REPORT INFORMATION
  Report Type: Spontaneous
  Country: US (occurrence: US)
  Receive Date: 20210508
  Receipt Date: 20210508
  Transmission Date: 20210717
  Serious: No
  Sender: FDA-Public Use
  Company Number: None

PATIENT
  Age: 34 Year
  Sex: Female
  Weight: 61.2 kg

DRUGS (1)
  1. SULFAMETHOXAZOLE?TRIMETHOPRIM 800?160 MG PER TABLET [Suspect]
     Active Substance: SULFAMETHOXAZOLE\TRIMETHOPRIM
     Indication: STAPHYLOCOCCAL INFECTION
     Dosage: ?          QUANTITY:28 TABLET(S);?
     Route: 048
     Dates: start: 20201222, end: 20201222

REACTIONS (8)
  - Middle insomnia [None]
  - Periorbital swelling [None]
  - Skin swelling [None]
  - Abdominal pain upper [None]
  - Fatigue [None]
  - Feeling abnormal [None]
  - Hypersensitivity [None]
  - Anaemia [None]

NARRATIVE: CASE EVENT DATE: 20201222
